FAERS Safety Report 7680726-7 (Version None)
Quarter: 2011Q3

REPORT INFORMATION
  Report Type: 
  Country: None (occurrence: None)
  Receive Date: 20110812
  Receipt Date: 20110803
  Transmission Date: 20111222
  Serious: Yes (Other)
  Sender: FDA-Public Use
  Company Number: US-BRISTOL-MYERS SQUIBB COMPANY-15946833

PATIENT

DRUGS (2)
  1. CRESTOR [Suspect]
     Route: 048
  2. ONGLYZA [Suspect]

REACTIONS (1)
  - PAPILLITIS [None]
